FAERS Safety Report 6086796-4 (Version None)
Quarter: 2009Q1

REPORT INFORMATION
  Report Type: 
  Country: None (occurrence: None)
  Receive Date: 20090213
  Receipt Date: 20090202
  Transmission Date: 20090719
  Serious: Yes (Other)
  Sender: FDA-Public Use
  Company Number: CHPA2009US02517

PATIENT
  Age: 82 Year
  Sex: Female
  Weight: 47.6 kg

DRUGS (4)
  1. BENEFIBR W/WHEAT DEXTRIN (NCH) (WHEAT DEXTRIN) CHEWABLE TABLET [Suspect]
     Indication: CONSTIPATION
     Dosage: 3330 MG, TID, ORAL
     Route: 048
     Dates: start: 20080701, end: 20081201
  2. STOOL SOFTENER (DOCUSATE SODIUM) [Concomitant]
  3. LIPITOR /NET/ (ATORVASTATIN CALCIUM) [Concomitant]
  4. CADUET (AMLODIPINE BESILATE, ATROVASTATIN CALCIUM) [Concomitant]

REACTIONS (5)
  - ABDOMINAL DISTENSION [None]
  - ABDOMINAL PAIN UPPER [None]
  - GASTRITIS [None]
  - GASTROOESOPHAGEAL REFLUX DISEASE [None]
  - IRRITABLE BOWEL SYNDROME [None]
